FAERS Safety Report 14926721 (Version 1)
Quarter: 2018Q2

REPORT INFORMATION
  Report Type: Spontaneous
  Country: FR (occurrence: FR)
  Receive Date: 20180523
  Receipt Date: 20180523
  Transmission Date: 20180711
  Serious: Yes (Other)
  Sender: FDA-Public Use
  Company Number: FR-009507513-1805FRA009244

PATIENT
  Age: 50 Year
  Sex: Male
  Weight: 80 kg

DRUGS (1)
  1. VIRAFERONPEG [Suspect]
     Active Substance: PEGINTERFERON ALFA-2B
     Indication: CHRONIC HEPATITIS C
     Dosage: 1 DF, QW
     Route: 058
     Dates: start: 200206, end: 200303

REACTIONS (1)
  - Drug ineffective [Not Recovered/Not Resolved]

NARRATIVE: CASE EVENT DATE: 200303
